FAERS Safety Report 25612193 (Version 1)
Quarter: 2025Q3

REPORT INFORMATION
  Report Type: Spontaneous
  Country: US (occurrence: US)
  Receive Date: 20250728
  Receipt Date: 20250728
  Transmission Date: 20251020
  Serious: Yes (Other)
  Sender: SANOFI AVENTIS
  Company Number: US-SA-2025SA213359

PATIENT
  Age: 60 Year
  Sex: Female

DRUGS (1)
  1. KEVZARA [Suspect]
     Active Substance: SARILUMAB
     Dosage: 200 MG, QOW
     Route: 058

REACTIONS (8)
  - Arrhythmia [Unknown]
  - Cardiac arrest [Unknown]
  - Blood magnesium decreased [Unknown]
  - Arthralgia [Unknown]
  - Dysstasia [Unknown]
  - Dry skin [Unknown]
  - Skin discolouration [Unknown]
  - Skin exfoliation [Unknown]
